FAERS Safety Report 4593872-1 (Version None)
Quarter: 2005Q1

REPORT INFORMATION
  Report Type: 
  Country: None (occurrence: None)
  Receive Date: 20050301
  Receipt Date: 20050218
  Transmission Date: 20050727
  Serious: Yes (Life-Threatening, Hospitalization)
  Sender: FDA-Public Use
  Company Number: DE-ROCHE-396139

PATIENT
  Age: 9 Year
  Sex: Female
  Weight: 37 kg

DRUGS (1)
  1. ROCEPHIN [Suspect]
     Dosage: REGIMEN REPORTED AS 7 DAY TREATMENT.
     Route: 042
     Dates: start: 20040601, end: 20040607

REACTIONS (5)
  - CHOLANGITIS [None]
  - CHOLELITHIASIS [None]
  - DEHYDRATION [None]
  - HEPATOMEGALY [None]
  - NASOPHARYNGEAL DISORDER [None]
